FAERS Safety Report 25362155 (Version 1)
Quarter: 2025Q2

REPORT INFORMATION
  Report Type: Spontaneous
  Country: US (occurrence: None)
  Receive Date: 20250523
  Receipt Date: 20250523
  Transmission Date: 20250717
  Serious: Yes (Disabling)
  Sender: FDA-CTU
  Company Number: None

PATIENT
  Age: 45 Year
  Sex: Female
  Weight: 84.15 kg

DRUGS (4)
  1. CIPROFLOXACIN [Suspect]
     Active Substance: CIPROFLOXACIN
     Indication: Urinary tract infection
     Dosage: FREQUENCY : TWICE A DAY;?
     Route: 048
     Dates: start: 20250416, end: 20250418
  2. PREVACID [Concomitant]
     Active Substance: LANSOPRAZOLE
  3. ZYRTEC [Concomitant]
     Active Substance: CETIRIZINE HYDROCHLORIDE
  4. VITAMIN D [Concomitant]
     Active Substance: VITAMIN D NOS

REACTIONS (10)
  - Fatigue [None]
  - Pain [None]
  - Gait disturbance [None]
  - Arthralgia [None]
  - Myalgia [None]
  - Fatigue [None]
  - Brain fog [None]
  - Anxiety [None]
  - Irritability [None]
  - Therapy cessation [None]

NARRATIVE: CASE EVENT DATE: 20250416
